FAERS Safety Report 16776596 (Version 1)
Quarter: 2019Q3

REPORT INFORMATION
  Report Type: Spontaneous
  Country: PT (occurrence: PT)
  Receive Date: 20190905
  Receipt Date: 20190905
  Transmission Date: 20191005
  Serious: Yes (Death, Other)
  Sender: FDA-Public Use
  Company Number: PT-GILEAD-2019-0426629

PATIENT
  Sex: Female

DRUGS (1)
  1. ZYDELIG [Suspect]
     Active Substance: IDELALISIB
     Indication: B-CELL LYMPHOMA
     Dosage: UNK
     Route: 065
     Dates: start: 201908

REACTIONS (1)
  - Death [Fatal]
